FAERS Safety Report 18661089 (Version 1)
Quarter: 2020Q4

REPORT INFORMATION
  Report Type: Spontaneous
  Country: US (occurrence: US)
  Receive Date: 20201224
  Receipt Date: 20201224
  Transmission Date: 20210114
  Serious: No
  Sender: FDA-Public Use
  Company Number: US-VERTEX PHARMACEUTICALS-2020-025332

PATIENT
  Sex: Female
  Weight: 65.58 kg

DRUGS (7)
  1. PULMOZYME [Concomitant]
     Active Substance: DORNASE ALFA
  2. KALYDECO [Suspect]
     Active Substance: IVACAFTOR
     Indication: CYSTIC FIBROSIS
     Dosage: 150 MG, BID
     Route: 048
  3. SODIUM CHLORIDE. [Concomitant]
     Active Substance: SODIUM CHLORIDE
  4. VITAMIN B [Concomitant]
     Active Substance: VITAMIN B
     Dosage: VITAMIN B-100 COMPLEX 0.4MG TABLET
  5. FISH OIL [Concomitant]
     Active Substance: FISH OIL
     Dosage: 100-150MG CAPSULE
  6. ZYRTEC [Concomitant]
     Active Substance: CETIRIZINE HYDROCHLORIDE
     Dosage: 10MG CAPSULE
  7. CALCIUM [Concomitant]
     Active Substance: CALCIUM
     Dosage: 500 (1250) TAB CHEW

REACTIONS (4)
  - Infective pulmonary exacerbation of cystic fibrosis [Not Recovered/Not Resolved]
  - Tendonitis [Not Recovered/Not Resolved]
  - Staphylococcal infection [Not Recovered/Not Resolved]
  - Pseudomonas infection [Not Recovered/Not Resolved]
